FAERS Safety Report 15694622 (Version 1)
Quarter: 2018Q4

REPORT INFORMATION
  Report Type: Spontaneous
  Country: US (occurrence: US)
  Receive Date: 20181206
  Receipt Date: 20181206
  Transmission Date: 20190205
  Serious: No
  Sender: FDA-Public Use
  Company Number: US-ENDO PHARMACEUTICALS INC-2017-008359

PATIENT
  Sex: Male
  Weight: 86.17 kg

DRUGS (12)
  1. XIAFLEX [Suspect]
     Active Substance: COLLAGENASE CLOSTRIDIUM HISTOLYTICUM
     Dosage: UNK, SINGLE, CYCLE 2, INJECTION 2
     Route: 026
     Dates: start: 20170524, end: 20170524
  2. XIAFLEX [Suspect]
     Active Substance: COLLAGENASE CLOSTRIDIUM HISTOLYTICUM
     Dosage: UNK, SINGLE, CYCLE 1, INJECTION 1 OF A DIFFERENT PLAQUE ON PENIS
     Route: 026
     Dates: start: 20171122, end: 20171122
  3. XIAFLEX [Suspect]
     Active Substance: COLLAGENASE CLOSTRIDIUM HISTOLYTICUM
     Dosage: UNK, SINGLE, CYCLE 4, INJECTION 1
     Route: 026
     Dates: start: 20170809, end: 20170809
  4. XIAFLEX [Suspect]
     Active Substance: COLLAGENASE CLOSTRIDIUM HISTOLYTICUM
     Dosage: UNK, SINGLE, CYCLE 2, INJECTION 1
     Route: 026
     Dates: start: 20170517, end: 20170517
  5. XIAFLEX [Suspect]
     Active Substance: COLLAGENASE CLOSTRIDIUM HISTOLYTICUM
     Dosage: UNK, SINGLE, CYCLE 3, INJECTION 1
     Route: 026
     Dates: start: 20170628, end: 20170628
  6. XIAFLEX [Suspect]
     Active Substance: COLLAGENASE CLOSTRIDIUM HISTOLYTICUM
     Dosage: UNK, SINGLE, CYCLE 3, INJECTION 2
     Route: 026
     Dates: start: 20170712, end: 20170712
  7. XIAFLEX [Suspect]
     Active Substance: COLLAGENASE CLOSTRIDIUM HISTOLYTICUM
     Dosage: UNK, SINGLE, CYCLE 1, INJECTION 2 OF A DIFFERENT PLAQUE ON PENIS
     Route: 026
     Dates: start: 20171129
  8. XIAFLEX [Suspect]
     Active Substance: COLLAGENASE CLOSTRIDIUM HISTOLYTICUM
     Indication: PEYRONIE^S DISEASE
     Dosage: UNK, SINGLE, CYCLE 1, INJECTION 1
     Route: 026
     Dates: start: 20170412, end: 20170412
  9. XIAFLEX [Suspect]
     Active Substance: COLLAGENASE CLOSTRIDIUM HISTOLYTICUM
     Dosage: UNK, SINGLE, CYCLE 1, INJECTION 2
     Route: 026
     Dates: start: 20170419, end: 20170419
  10. XIAFLEX [Suspect]
     Active Substance: COLLAGENASE CLOSTRIDIUM HISTOLYTICUM
     Dosage: UNK, SINGLE, CYCLE 4, INJECTION 2
     Route: 026
     Dates: start: 20170816, end: 20170816
  11. XIAFLEX [Suspect]
     Active Substance: COLLAGENASE CLOSTRIDIUM HISTOLYTICUM
     Dosage: UNK, SINGLE, CYCLE 5, INJECTION 1
     Route: 026
     Dates: start: 20171018, end: 20171018
  12. XIAFLEX [Suspect]
     Active Substance: COLLAGENASE CLOSTRIDIUM HISTOLYTICUM
     Dosage: UNK, SINGLE, CYCLE 5, INJECTION 2
     Route: 026
     Dates: start: 20171025, end: 20171025

REACTIONS (4)
  - Inappropriate schedule of product administration [Unknown]
  - Drug ineffective [Unknown]
  - Condition aggravated [Unknown]
  - Wrong technique in product usage process [Unknown]

NARRATIVE: CASE EVENT DATE: 2017
